FAERS Safety Report 6955065-X (Version None)
Quarter: 2010Q3

REPORT INFORMATION
  Report Type: 
  Country: None (occurrence: None)
  Receive Date: 20100830
  Receipt Date: 20100816
  Transmission Date: 20110219
  Serious: Yes (Other)
  Sender: FDA-Public Use
  Company Number: US-CELGENEUS-163-21880-10020547

PATIENT
  Sex: Female

DRUGS (2)
  1. REVLIMID [Suspect]
     Indication: MULTIPLE MYELOMA
     Route: 048
     Dates: start: 20090601, end: 20100215
  2. REVLIMID [Suspect]
     Route: 048
     Dates: start: 20100813

REACTIONS (6)
  - FATIGUE [None]
  - HYPERTENSION [None]
  - JOINT STIFFNESS [None]
  - NEUROPATHY PERIPHERAL [None]
  - PRURITUS [None]
  - VIITH NERVE PARALYSIS [None]
